FAERS Safety Report 8251643-9 (Version None)
Quarter: 2012Q2

REPORT INFORMATION
  Report Type: 
  Country: None (occurrence: None)
  Receive Date: 20120402
  Receipt Date: 20111213
  Transmission Date: 20120825
  Serious: No
  Sender: FDA-Public Use
  Company Number: US-ABBOTT-11P-163-0883774-00

PATIENT
  Age: 41 Year
  Sex: Male

DRUGS (1)
  1. ANDROGEL [Suspect]
     Indication: HYPOGONADISM
     Route: 061
     Dates: start: 20111101, end: 20111101

REACTIONS (2)
  - SLUGGISHNESS [None]
  - HEADACHE [None]
